FAERS Safety Report 4796956-8 (Version None)
Quarter: 2005Q4

REPORT INFORMATION
  Report Type: 
  Country: None (occurrence: None)
  Receive Date: 20051011
  Receipt Date: 20051011
  Transmission Date: 20060501
  Serious: No
  Sender: FDA-Public Use
  Company Number: None

PATIENT
  Age: 49 Year
  Sex: Female

DRUGS (1)
  1. LAMICTAL [Suspect]
     Indication: RESTLESS LEGS SYNDROME
     Dosage: 25MG BID
     Dates: start: 20050816, end: 20050816

REACTIONS (1)
  - PRURITUS [None]
